FAERS Safety Report 7202796-2 (Version None)
Quarter: 2010Q4

REPORT INFORMATION
  Report Type: 
  Country: None (occurrence: None)
  Receive Date: 20101229
  Receipt Date: 20101109
  Transmission Date: 20110411
  Serious: No
  Sender: FDA-Public Use
  Company Number: US-BAUSCH-2010BL006417

PATIENT
  Age: 47 Year
  Sex: Female

DRUGS (2)
  1. BESIVANCE [Suspect]
     Indication: POSTOPERATIVE CARE
     Route: 047
     Dates: start: 20100925, end: 20100930
  2. BESIVANCE [Suspect]
     Indication: OFF LABEL USE
     Route: 047
     Dates: start: 20100925, end: 20100930

REACTIONS (4)
  - EYE IRRITATION [None]
  - HYPERSENSITIVITY [None]
  - OCULAR HYPERAEMIA [None]
  - VISION BLURRED [None]
